FAERS Safety Report 6401930-1 (Version None)
Quarter: 2009Q4

REPORT INFORMATION
  Report Type: 
  Country: None (occurrence: None)
  Receive Date: 20091015
  Receipt Date: 20091009
  Transmission Date: 20100525
  Serious: Yes (Other)
  Sender: FDA-Public Use
  Company Number: A0804136A

PATIENT
  Sex: Female

DRUGS (2)
  1. COREG [Suspect]
     Indication: ATRIAL FIBRILLATION
  2. LEVOTHYROXINE SODIUM [Suspect]

REACTIONS (6)
  - ATRIAL FIBRILLATION [None]
  - CARDIAC DISORDER [None]
  - CARDIAC FAILURE [None]
  - DIZZINESS POSTURAL [None]
  - FATIGUE [None]
  - NONSPECIFIC REACTION [None]
